FAERS Safety Report 4652327-6 (Version None)
Quarter: 2005Q2

REPORT INFORMATION
  Report Type: 
  Country: None (occurrence: None)
  Receive Date: 20050504
  Receipt Date: 20050329
  Transmission Date: 20051028
  Serious: Yes (Hospitalization)
  Sender: FDA-Public Use
  Company Number: US-GLAXOSMITHKLINE-A0555661A

PATIENT
  Age: 17 Year
  Sex: Female

DRUGS (4)
  1. PAXIL [Suspect]
     Indication: DEPRESSION
     Dosage: 30MG PER DAY
     Route: 048
     Dates: start: 20021101
  2. ELAVIL [Concomitant]
  3. ATIVAN [Concomitant]
  4. OXYCONTIN [Concomitant]

REACTIONS (1)
  - SUICIDAL IDEATION [None]
